FAERS Safety Report 7027423-9 (Version None)
Quarter: 2010Q3

REPORT INFORMATION
  Report Type: 
  Country: None (occurrence: None)
  Receive Date: 20100930
  Receipt Date: 20100917
  Transmission Date: 20110219
  Serious: Yes (Other)
  Sender: FDA-Public Use
  Company Number: 2010S1000800

PATIENT
  Age: 62 Year
  Sex: Male

DRUGS (1)
  1. LIVALO [Suspect]
     Dosage: 2 MG; 1X; PO
     Route: 048
     Dates: start: 20090801, end: 20090901

REACTIONS (1)
  - LIVER DISORDER [None]
